FAERS Safety Report 24954952 (Version 1)
Quarter: 2025Q1

REPORT INFORMATION
  Report Type: Spontaneous
  Country: US (occurrence: None)
  Receive Date: 20250211
  Receipt Date: 20250211
  Transmission Date: 20250409
  Serious: Yes (Hospitalization)
  Sender: FDA-CTU
  Company Number: None

PATIENT
  Age: 56 Year
  Sex: Male
  Weight: 87.8 kg

DRUGS (5)
  1. FLUOROURACIL [Suspect]
     Active Substance: FLUOROURACIL
     Dates: end: 20241210
  2. CAMPTOSAR [Suspect]
     Active Substance: IRINOTECAN HYDROCHLORIDE
     Dates: end: 20241210
  3. LEUCOVORIN CALCIUM [Suspect]
     Active Substance: LEUCOVORIN CALCIUM
     Dates: end: 20241210
  4. NIVOLUMAB [Suspect]
     Active Substance: NIVOLUMAB
     Dates: end: 20241210
  5. ELOXATIN [Suspect]
     Active Substance: OXALIPLATIN
     Dates: end: 20241210

REACTIONS (21)
  - Neutropenia [None]
  - Nausea [None]
  - Pyrexia [None]
  - Chills [None]
  - Asthenia [None]
  - Chills [None]
  - Rash [None]
  - Flushing [None]
  - Contrast media allergy [None]
  - White blood cell count increased [None]
  - Platelet count decreased [None]
  - Neutrophil count increased [None]
  - Lymphocyte count decreased [None]
  - Blood albumin decreased [None]
  - Cholelithiasis [None]
  - Splenomegaly [None]
  - Lymphadenopathy [None]
  - Sinus bradycardia [None]
  - Sinus arrhythmia [None]
  - Infusion related reaction [None]
  - Actinic keratosis [None]

NARRATIVE: CASE EVENT DATE: 20241225
